FAERS Safety Report 6601730-3 (Version None)
Quarter: 2010Q1

REPORT INFORMATION
  Report Type: 
  Country: None (occurrence: None)
  Receive Date: 20100225
  Receipt Date: 20100218
  Transmission Date: 20100710
  Serious: Yes (Hospitalization)
  Sender: FDA-Public Use
  Company Number: US-SANOFI-AVENTIS-2010SA010296

PATIENT
  Age: 72 Year
  Sex: Female

DRUGS (2)
  1. LANTUS [Suspect]
     Indication: TYPE 2 DIABETES MELLITUS
     Dosage: DOSE:40 UNIT(S)
     Route: 058
     Dates: start: 20000101
  2. ENALAPRIL MALEATE [Suspect]
     Route: 065

REACTIONS (5)
  - BLISTER [None]
  - CELLULITIS [None]
  - OEDEMA PERIPHERAL [None]
  - THYROID DISORDER [None]
  - WEIGHT INCREASED [None]
